FAERS Safety Report 8049119-7 (Version None)
Quarter: 2012Q1

REPORT INFORMATION
  Report Type: 
  Country: None (occurrence: None)
  Receive Date: 20120117
  Receipt Date: 20120111
  Transmission Date: 20120608
  Serious: Yes (Death)
  Sender: FDA-Public Use
  Company Number: JP-UCBSA-8046979

PATIENT
  Age: 45 Year
  Sex: Male
  Weight: 57.5 kg

DRUGS (7)
  1. RABEPRAZOLE SODIUM [Concomitant]
     Dosage: DOSE FREQ.: DAILY
     Dates: start: 20081114
  2. PREDNISOLONE [Suspect]
     Indication: RHEUMATOID ARTHRITIS
     Route: 048
     Dates: start: 20090207
  3. PROGRAF [Suspect]
     Indication: RHEUMATOID ARTHRITIS
     Route: 048
     Dates: start: 20081212, end: 20090519
  4. PROGRAF [Suspect]
     Dosage: DOSE FREQ.: DAILY
     Route: 048
     Dates: start: 20090525
  5. CERTOLIZUMAB PEGOL [Suspect]
     Indication: RHEUMATOID ARTHRITIS
     Route: 058
     Dates: start: 20090109
  6. PREDNISOLONE [Suspect]
     Indication: RHEUMATOID ARTHRITIS
     Route: 048
     Dates: start: 20090310
  7. LOXOPROFEN SODIUM [Concomitant]
     Dates: start: 20081114

REACTIONS (2)
  - COMPLETED SUICIDE [None]
  - ILEITIS [None]
